FAERS Safety Report 14705633 (Version 1)
Quarter: 2018Q2

REPORT INFORMATION
  Report Type: Spontaneous
  Country: BR (occurrence: BR)
  Receive Date: 20180402
  Receipt Date: 20180402
  Transmission Date: 20180711
  Serious: Yes (Death, Other)
  Sender: FDA-Public Use
  Company Number: BR-BAYER-2018-058030

PATIENT
  Age: 0 Day
  Sex: Female
  Weight: 3.38 kg

DRUGS (1)
  1. QLAIRA [Suspect]
     Active Substance: DIENOGEST\ESTRADIOL VALERATE
     Dosage: 1 DF, QD
     Dates: start: 2013, end: 20161215

REACTIONS (2)
  - Foetal exposure during pregnancy [None]
  - Neonatal asphyxia [Fatal]

NARRATIVE: CASE EVENT DATE: 20170630
